FAERS Safety Report 7674782-X (Version None)
Quarter: 2011Q3

REPORT INFORMATION
  Report Type: 
  Country: None (occurrence: None)
  Receive Date: 20110810
  Receipt Date: 20110805
  Transmission Date: 20111222
  Serious: Yes (Other)
  Sender: FDA-Public Use
  Company Number: JP-VIIV HEALTHCARE LIMITED-B0735088A

PATIENT
  Sex: Male

DRUGS (4)
  1. KALETRA [Suspect]
     Indication: HIV INFECTION
     Dosage: 4IUAX PER DAY
     Route: 048
     Dates: start: 20040527, end: 20110705
  2. TRUVADA [Concomitant]
     Indication: HIV INFECTION
     Route: 048
     Dates: start: 20110705
  3. ISENTRESS [Concomitant]
     Indication: HIV INFECTION
     Route: 048
     Dates: start: 20110705
  4. COMBIVIR [Suspect]
     Indication: HIV INFECTION
     Dosage: 2IUAX PER DAY
     Route: 048
     Dates: start: 20040527, end: 20110705

REACTIONS (5)
  - AORTIC THROMBOSIS [None]
  - HYPOAESTHESIA [None]
  - PAIN IN EXTREMITY [None]
  - ILIAC ARTERY THROMBOSIS [None]
  - HYPERLIPIDAEMIA [None]
